FAERS Safety Report 7044825-5 (Version None)
Quarter: 2010Q4

REPORT INFORMATION
  Report Type: 
  Country: None (occurrence: None)
  Receive Date: 20101014
  Receipt Date: 20101005
  Transmission Date: 20110411
  Serious: Yes (Hospitalization)
  Sender: FDA-Public Use
  Company Number: US-JNJFOC-20101001958

PATIENT
  Sex: Male
  Weight: 90.72 kg

DRUGS (8)
  1. SANDOZ FENTANYL TRANSDERMAL SYSTEM [Suspect]
     Indication: BACK PAIN
     Dosage: NDC-0781-7114-55-55
     Route: 062
  2. SANDOZ FENTANYL TRANSDERMAL SYSTEM [Suspect]
     Dosage: 100 PLUS 25 UG/HR  (NDC-0781-7114-55, NDC-0781-7111-55)
     Route: 062
  3. SANDOZ FENTANYL TRANSDERMAL SYSTEM [Suspect]
     Dosage: NDC-0781-7114-55
     Route: 062
  4. UNKNOWN MEDICATION [Concomitant]
     Indication: BLOOD CHOLESTEROL INCREASED
     Dosage: THREE TIMES DAILY
     Route: 048
  5. UNKNOWN MEDICATION [Concomitant]
     Indication: PANCREATITIS
     Dosage: THREE TIMES DAILY
     Route: 048
  6. LOPID [Concomitant]
     Indication: BLOOD CHOLESTEROL INCREASED
     Route: 048
  7. DILAUDID [Concomitant]
     Indication: BREAKTHROUGH PAIN
     Dosage: 2-4 MG, 1-2 TABLETS EVERY 3-6 HOURS
     Route: 048
  8. VALIUM [Concomitant]
     Indication: BREAKTHROUGH PAIN
     Dosage: AS NEEDED
     Route: 048

REACTIONS (1)
  - OSTEOARTHRITIS [None]
